FAERS Safety Report 16351901 (Version 1)
Quarter: 2019Q2

REPORT INFORMATION
  Report Type: Spontaneous
  Country: US (occurrence: US)
  Receive Date: 20190418
  Receipt Date: 20190418
  Transmission Date: 20190711
  Serious: Yes (Hospitalization)
  Sender: FDA-Public Use
  Company Number: None

PATIENT
  Age: 55 Year
  Sex: Female

DRUGS (2)
  1. XOLAIR [Suspect]
     Active Substance: OMALIZUMAB
     Indication: URTICARIA
     Route: 058
     Dates: start: 20180116
  2. CLARITHROMYC [Concomitant]

REACTIONS (3)
  - Therapy cessation [None]
  - Unevaluable event [None]
  - Emergency care [None]

NARRATIVE: CASE EVENT DATE: 20190412
